FAERS Safety Report 5771492-0 (Version None)
Quarter: 2008Q2

REPORT INFORMATION
  Report Type: 
  Country: None (occurrence: None)
  Receive Date: 20080612
  Receipt Date: 20080612
  Transmission Date: 20081010
  Serious: Yes (Hospitalization)
  Sender: FDA-Public Use
  Company Number: None

PATIENT
  Sex: Female
  Weight: 88.5 kg

DRUGS (2)
  1. EXENATIDE [Suspect]
     Indication: TYPE 2 DIABETES MELLITUS
     Dosage: 10MCG BID SQ
     Route: 058
     Dates: start: 20070710, end: 20080423
  2. PLACEBO [Suspect]
     Dosage: 10 MCG BID SQ
     Route: 058

REACTIONS (4)
  - ABDOMINAL MASS [None]
  - ABDOMINAL PAIN [None]
  - CYST [None]
  - VOMITING [None]
